FAERS Safety Report 6126018-9 (Version None)
Quarter: 2009Q1

REPORT INFORMATION
  Report Type: 
  Country: None (occurrence: None)
  Receive Date: 20090320
  Receipt Date: 20090311
  Transmission Date: 20090719
  Serious: Yes (Other)
  Sender: FDA-Public Use
  Company Number: DE-ROCHE-621837

PATIENT
  Sex: Male

DRUGS (3)
  1. PEGASYS [Suspect]
     Route: 065
  2. COPEGUS [Suspect]
     Route: 065
  3. INTERFERON [Suspect]
     Route: 065

REACTIONS (1)
  - CHRONIC LYMPHOCYTIC LEUKAEMIA [None]
